FAERS Safety Report 22633066 (Version 1)
Quarter: 2023Q2

REPORT INFORMATION
  Report Type: Spontaneous
  Country: US (occurrence: US)
  Receive Date: 20230623
  Receipt Date: 20230623
  Transmission Date: 20230721
  Serious: Yes (Other)
  Sender: FDA-Public Use
  Company Number: US-JNJFOC-20230639451

PATIENT
  Sex: Female

DRUGS (1)
  1. ELMIRON [Suspect]
     Active Substance: PENTOSAN POLYSULFATE SODIUM
     Indication: Cystitis interstitial
     Dosage: FOR 02 YEARS INITIALLY, THEN 01 YEAR, THEN 08 MONTHS AND THEN 06 MONTHS
     Route: 048

REACTIONS (2)
  - Dry age-related macular degeneration [Unknown]
  - Toxicity to various agents [Unknown]
